FAERS Safety Report 22164846 (Version 2)
Quarter: 2023Q2

REPORT INFORMATION
  Report Type: Spontaneous
  Country: US (occurrence: US)
  Receive Date: 20230403
  Receipt Date: 20230404
  Transmission Date: 20230721
  Serious: No
  Sender: FDA-Public Use
  Company Number: US-002147023-NVSC2023US074934

PATIENT

DRUGS (3)
  1. COSENTYX [Suspect]
     Active Substance: SECUKINUMAB
     Indication: Product used for unknown indication
     Dosage: UNK
     Route: 065
  2. HUMIRA [Suspect]
     Active Substance: ADALIMUMAB
     Indication: Psoriasis
     Dosage: 1 DOSAGE FORM, (STRENGTH: 80 MG/0.8 ML), DAY 1
     Route: 058
  3. HUMIRA [Suspect]
     Active Substance: ADALIMUMAB
     Dosage: 1 DOSAGE FORM, (STRENGTH: 40 MG/0.4 ML), DAY 8
     Route: 058

REACTIONS (2)
  - Illness [Not Recovered/Not Resolved]
  - Psoriasis [Not Recovered/Not Resolved]
